FAERS Safety Report 8261089-5 (Version None)
Quarter: 2012Q2

REPORT INFORMATION
  Report Type: 
  Country: None (occurrence: None)
  Receive Date: 20120405
  Receipt Date: 20120328
  Transmission Date: 20120825
  Serious: Yes (Other)
  Sender: FDA-Public Use
  Company Number: PHHY2012EG019532

PATIENT
  Age: 70 Year
  Sex: Male

DRUGS (4)
  1. STROKA [Concomitant]
     Indication: CEREBRAL DISORDER
     Dosage: 1 SPOONFUL ONCE PER DAY
  2. CLOZAPINE [Concomitant]
     Indication: AGITATION
     Dosage: 1 SPOONFUL ONCE PER DAY
  3. RIVASTIGMINE [Suspect]
     Indication: DEMENTIA ALZHEIMER'S TYPE
     Dosage: 4.6 MG, DAILY
     Route: 062
     Dates: start: 20110816, end: 20110913
  4. MEMANTINE [Concomitant]
     Indication: DEMENTIA ALZHEIMER'S TYPE
     Dosage: 25 MG, UNK

REACTIONS (5)
  - VERTIGO [None]
  - CEREBROVASCULAR ACCIDENT [None]
  - FALL [None]
  - ORTHOSTATIC HYPOTENSION [None]
  - DIZZINESS [None]
